FAERS Safety Report 6407024-3 (Version None)
Quarter: 2009Q4

REPORT INFORMATION
  Report Type: 
  Country: None (occurrence: None)
  Receive Date: 20091020
  Receipt Date: 20091008
  Transmission Date: 20100525
  Serious: No
  Sender: FDA-Public Use
  Company Number: JP-PFIZER INC-2009275539

PATIENT
  Age: 39 Year

DRUGS (5)
  1. CORTRIL [Suspect]
     Indication: DISSEMINATED INTRAVASCULAR COAGULATION
     Dosage: 50 MG/DAY
     Route: 048
     Dates: start: 20090911
  2. GASMOTIN [Concomitant]
     Route: 048
  3. METHYCOBAL [Concomitant]
  4. THYRADIN S [Concomitant]
     Route: 048
  5. ALFAROL [Concomitant]
     Route: 048

REACTIONS (1)
  - ELECTROLYTE DEPLETION [None]
